FAERS Safety Report 10550088 (Version 2)
Quarter: 2014Q4

REPORT INFORMATION
  Report Type: Report from Study
  Country: NL (occurrence: NL)
  Receive Date: 20141028
  Receipt Date: 20141117
  Transmission Date: 20150529
  Serious: Yes (Death, Hospitalization, Other)
  Sender: FDA-Public Use
  Company Number: PHHY2014NL138794

PATIENT
  Age: 75 Year
  Sex: Female

DRUGS (2)
  1. ACLASTA [Suspect]
     Active Substance: ZOLEDRONIC ACID
     Dosage: 5 MG, (1X PER 52 WEEKS)
     Route: 042
     Dates: start: 20131021
  2. ACLASTA [Suspect]
     Active Substance: ZOLEDRONIC ACID
     Indication: OSTEOPOROSIS
     Dosage: 5 MG, (1X PER 52 WEEKS)
     Route: 042
     Dates: start: 20121016

REACTIONS (34)
  - Angina pectoris [Unknown]
  - Myalgia [Unknown]
  - Escherichia infection [Unknown]
  - Oedema [Unknown]
  - Anaemia [Unknown]
  - Upper respiratory tract infection [Unknown]
  - Fall [Unknown]
  - Cardiac failure [Unknown]
  - Rib fracture [Unknown]
  - Scab [Unknown]
  - Terminal state [Fatal]
  - Chronic obstructive pulmonary disease [Unknown]
  - Diverticulitis [Unknown]
  - Wound [Unknown]
  - Microcytic anaemia [Unknown]
  - Angiopathy [Unknown]
  - Photophobia [Unknown]
  - Vaginal haemorrhage [Unknown]
  - Temperature difference of extremities [Unknown]
  - Inflammation of wound [Unknown]
  - Aortic disorder [Unknown]
  - Dyspnoea [Recovered/Resolved]
  - Huntington^s disease [Unknown]
  - Oesophageal ulcer [Unknown]
  - Pleural disorder [Unknown]
  - Restrictive pulmonary disease [Unknown]
  - Haemorrhage [Unknown]
  - Hyponatraemia [Unknown]
  - Pollakiuria [Unknown]
  - Breath sounds abnormal [Unknown]
  - Crepitations [Unknown]
  - Iron deficiency anaemia [Unknown]
  - Inappropriate antidiuretic hormone secretion [Unknown]
  - Staphylococcus test positive [Unknown]

NARRATIVE: CASE EVENT DATE: 2012
